FAERS Safety Report 11011009 (Version 2)
Quarter: 2015Q2

REPORT INFORMATION
  Report Type: Spontaneous
  Country: US (occurrence: US)
  Receive Date: 20150410
  Receipt Date: 20150529
  Transmission Date: 20150821
  Serious: Yes (Death, Hospitalization, Other)
  Sender: FDA-Public Use
  Company Number: US-TEVA-553082USA

PATIENT
  Age: 79 Year
  Sex: Male

DRUGS (2)
  1. XARELTO [Suspect]
     Active Substance: RIVAROXABAN
     Route: 065
  2. AMIODARONE [Suspect]
     Active Substance: AMIODARONE
     Dosage: 400 MILLIGRAM DAILY;
     Route: 065
     Dates: start: 20140611

REACTIONS (14)
  - Contusion [Unknown]
  - Pulmonary fibrosis [Unknown]
  - Asthenia [Unknown]
  - Cough [Unknown]
  - Pyrexia [Unknown]
  - Haematoma [Recovering/Resolving]
  - Fall [Unknown]
  - Gait disturbance [Unknown]
  - Dyspnoea [Unknown]
  - Bronchitis [Unknown]
  - Anaemia [Unknown]
  - Back pain [Unknown]
  - Pneumonia [Fatal]
  - Cataract [Unknown]

NARRATIVE: CASE EVENT DATE: 2014
